FAERS Safety Report 21192864 (Version 1)
Quarter: 2022Q3

REPORT INFORMATION
  Report Type: Spontaneous
  Country: CN (occurrence: CN)
  Receive Date: 20220810
  Receipt Date: 20220810
  Transmission Date: 20221027
  Serious: Yes (Other)
  Sender: FDA-Public Use
  Company Number: None

PATIENT
  Age: 42 Year
  Sex: Female
  Weight: 62 kg

DRUGS (7)
  1. CYCLOPHOSPHAMIDE [Suspect]
     Active Substance: CYCLOPHOSPHAMIDE
     Indication: Follicular lymphoma
     Dosage: 1.000000G,QD, CYCLOPHOSPHAMIDE 1G + 0.9% SODIUM CHLORIDE INJECTION 100ML D1
     Route: 041
     Dates: start: 20220106, end: 20220106
  2. SODIUM CHLORIDE [Suspect]
     Active Substance: SODIUM CHLORIDE
     Indication: Medication dilution
     Dosage: 100 ML, QD, CYCLOPHOSPHAMIDE 1G + 0.9% SODIUM CHLORIDE INJECTION 100ML D1
     Route: 041
     Dates: start: 20220106, end: 20220106
  3. SODIUM CHLORIDE [Suspect]
     Active Substance: SODIUM CHLORIDE
     Dosage: 250 ML, QD,  VINDESINE 2 MG + 0.9% SODIUM CHLORIDE INJECTION 250ML D1
     Route: 041
     Dates: start: 20220106, end: 20220106
  4. DEXTROSE MONOHYDRATE [Suspect]
     Active Substance: DEXTROSE MONOHYDRATE
     Indication: Medication dilution
     Dosage: 100ML QD, PIRARUBICIN 70 MG + 5% GLUCOSE INJECTION 100ML D1
     Route: 041
     Dates: start: 20220106, end: 20220106
  5. PIRARUBICIN HYDROCHLORIDE [Suspect]
     Active Substance: PIRARUBICIN HYDROCHLORIDE
     Indication: Follicular lymphoma
     Dosage: 70.000000 MG, ONCE DAILY, PIRARUBICIN 70 MG + 5% GLUCOSE INJECTION 100ML
     Route: 041
     Dates: start: 20220106, end: 20220106
  6. VINDESINE SULFATE [Suspect]
     Active Substance: VINDESINE SULFATE
     Indication: Follicular lymphoma
     Dosage: 2.000000MG ONCE DAILY,  VINDESINE 2 MG + 0.9% SODIUM CHLORIDE INJECTION 250ML D1
     Route: 041
     Dates: start: 20220106, end: 20220106
  7. PREDNISONE [Suspect]
     Active Substance: PREDNISONE
     Indication: Follicular lymphoma
     Dosage: 40MG, BID, D1-5 FOR 21 DAY
     Route: 048
     Dates: start: 20220106

REACTIONS (1)
  - Myelosuppression [Recovering/Resolving]

NARRATIVE: CASE EVENT DATE: 20220125
